FAERS Safety Report 17050717 (Version 1)
Quarter: 2019Q4

REPORT INFORMATION
  Report Type: Spontaneous
  Country: FR (occurrence: FR)
  Receive Date: 20191119
  Receipt Date: 20191119
  Transmission Date: 20200122
  Serious: Yes (Hospitalization)
  Sender: FDA-Public Use
  Company Number: FR-SUN PHARMACEUTICAL INDUSTRIES LTD-2019RR-228032

PATIENT
  Age: 97 Year
  Sex: Female
  Weight: 82 kg

DRUGS (1)
  1. ZOLPIDEM [Suspect]
     Active Substance: ZOLPIDEM TARTRATE
     Indication: IRREGULAR SLEEP WAKE RHYTHM DISORDER
     Dosage: 0.5 DOSAGE FORM, DAILY
     Route: 048
     Dates: start: 201802

REACTIONS (3)
  - Acute kidney injury [Recovered/Resolved]
  - Fall [Recovered/Resolved]
  - Rhabdomyolysis [Recovered/Resolved]

NARRATIVE: CASE EVENT DATE: 201802
